FAERS Safety Report 23731204 (Version 8)
Quarter: 2025Q1

REPORT INFORMATION
  Report Type: Report from Study
  Country: JP (occurrence: JP)
  Receive Date: 20240411
  Receipt Date: 20250206
  Transmission Date: 20250409
  Serious: Yes (Other)
  Sender: NOVARTIS
  Company Number: JP-002147023-NVSJ2024JP003892

PATIENT
  Age: 14 Year
  Sex: Female
  Weight: 62.3 kg

DRUGS (8)
  1. TAFINLAR [Suspect]
     Active Substance: DABRAFENIB MESYLATE
     Indication: Malignant glioma
     Route: 048
     Dates: start: 20240126, end: 20240206
  2. TAFINLAR [Suspect]
     Active Substance: DABRAFENIB MESYLATE
     Indication: BRAF V600E mutation positive
     Route: 048
     Dates: start: 20240213, end: 20240312
  3. TAFINLAR [Suspect]
     Active Substance: DABRAFENIB MESYLATE
     Route: 048
     Dates: start: 20240313, end: 20240521
  4. TAFINLAR [Suspect]
     Active Substance: DABRAFENIB MESYLATE
     Route: 048
     Dates: start: 20240605, end: 20240926
  5. MEKINIST [Suspect]
     Active Substance: TRAMETINIB DIMETHYL SULFOXIDE
     Indication: Malignant glioma
     Route: 048
     Dates: start: 20240126, end: 20240206
  6. MEKINIST [Suspect]
     Active Substance: TRAMETINIB DIMETHYL SULFOXIDE
     Indication: BRAF V600E mutation positive
     Route: 048
     Dates: start: 20240213, end: 20240312
  7. MEKINIST [Suspect]
     Active Substance: TRAMETINIB DIMETHYL SULFOXIDE
     Route: 048
     Dates: start: 20240313, end: 20240521
  8. MEKINIST [Suspect]
     Active Substance: TRAMETINIB DIMETHYL SULFOXIDE
     Route: 048
     Dates: start: 20240605, end: 20240926

REACTIONS (9)
  - C-reactive protein increased [Recovering/Resolving]
  - Amylase increased [Recovering/Resolving]
  - Retinal detachment [Recovered/Resolved]
  - Uveitis [Recovering/Resolving]
  - Pain [Recovering/Resolving]
  - Parotid gland enlargement [Recovered/Resolved]
  - Pyrexia [Recovering/Resolving]
  - Rash erythematous [Recovering/Resolving]
  - Dermatitis acneiform [Recovering/Resolving]

NARRATIVE: CASE EVENT DATE: 20240130
